FAERS Safety Report 9233545 (Version 1)
Quarter: 2013Q2

REPORT INFORMATION
  Report Type: Spontaneous
  Country: US (occurrence: None)
  Receive Date: 20130415
  Receipt Date: 20130415
  Transmission Date: 20140414
  Serious: Yes (Other)
  Sender: FDA-Public Use
  Company Number: None

PATIENT
  Age: 28 Year
  Sex: Female
  Weight: 58.06 kg

DRUGS (1)
  1. MIRENA IUD BAYER [Suspect]
     Indication: CONTRACEPTION
     Dates: start: 20090320, end: 20120410

REACTIONS (13)
  - Polycystic ovaries [None]
  - General physical health deterioration [None]
  - Acne [None]
  - Hair growth abnormal [None]
  - Alopecia [None]
  - Thyroid function test abnormal [None]
  - Weight decreased [None]
  - Panic attack [None]
  - Depression suicidal [None]
  - Paraesthesia [None]
  - Headache [None]
  - Pelvic pain [None]
  - Anger [None]
